FAERS Safety Report 18413777 (Version 1)
Quarter: 2020Q4

REPORT INFORMATION
  Report Type: Report from Study
  Country: None (occurrence: ZA)
  Receive Date: 20201021
  Receipt Date: 20201021
  Transmission Date: 20210114
  Serious: Yes (Other)
  Sender: FDA-Public Use
  Company Number: ZA-ABBVIE-20K-143-3614114-00

PATIENT
  Sex: Male

DRUGS (3)
  1. HUMIRA [Suspect]
     Active Substance: ADALIMUMAB
     Indication: COLITIS ULCERATIVE
     Dosage: DAY 1
     Route: 058
     Dates: start: 20200327, end: 20200327
  2. HUMIRA [Suspect]
     Active Substance: ADALIMUMAB
     Route: 058
     Dates: start: 2020, end: 202007
  3. HUMIRA [Suspect]
     Active Substance: ADALIMUMAB
     Dosage: DAY 14?TWO WEEK LATER
     Route: 058
     Dates: start: 20200410, end: 20200410

REACTIONS (1)
  - Eye injury [Not Recovered/Not Resolved]

NARRATIVE: CASE EVENT DATE: 2020
